FAERS Safety Report 16000205 (Version 1)
Quarter: 2019Q1

REPORT INFORMATION
  Report Type: Spontaneous
  Country: DE (occurrence: DE)
  Receive Date: 20190225
  Receipt Date: 20190225
  Transmission Date: 20190418
  Serious: Yes (Other)
  Sender: FDA-Public Use
  Company Number: DE-PFIZER INC-2019079337

PATIENT
  Age: 61 Year
  Sex: Female

DRUGS (3)
  1. IBRANCE [Suspect]
     Active Substance: PALBOCICLIB
     Route: 065
  2. AVASTIN [Suspect]
     Active Substance: BEVACIZUMAB
     Indication: NEOPLASM MALIGNANT
     Route: 065
  3. LETROZOL [Concomitant]
     Active Substance: LETROZOLE

REACTIONS (4)
  - Neoplasm progression [Unknown]
  - Vertigo [Unknown]
  - Visual impairment [Unknown]
  - Neoplasm recurrence [Unknown]
